FAERS Safety Report 16076184 (Version 1)
Quarter: 2019Q1

REPORT INFORMATION
  Report Type: Spontaneous
  Country: ES (occurrence: ES)
  Receive Date: 20190315
  Receipt Date: 20190315
  Transmission Date: 20190418
  Serious: Yes (Hospitalization, Other)
  Sender: FDA-Public Use
  Company Number: ES-ACCORD-112882

PATIENT
  Age: 88 Year
  Sex: Female

DRUGS (6)
  1. ATROVENT [Concomitant]
     Active Substance: IPRATROPIUM BROMIDE
     Indication: CARDIAC FAILURE
     Route: 055
     Dates: start: 20170322
  2. OMEPRAZOLE. [Concomitant]
     Active Substance: OMEPRAZOLE
     Indication: BREAST CANCER FEMALE
     Route: 048
     Dates: start: 20180517
  3. FORMODUAL [Concomitant]
     Indication: ASTHMA
     Dosage: 2 PUFF C/12 HORAS,IN PRESSURE CONTAINER 1 INHALER 120-DOSE
     Route: 055
     Dates: start: 20180516
  4. DIAZEPAM NORMON [Concomitant]
     Indication: ANXIETY
     Route: 048
     Dates: start: 20180410
  5. FUROSEMIDE. [Suspect]
     Active Substance: FUROSEMIDE
     Indication: CARDIAC FAILURE
     Route: 048
     Dates: start: 20180405
  6. OXCARBAZEPINE. [Concomitant]
     Active Substance: OXCARBAZEPINE
     Indication: TRIGEMINAL NEURALGIA
     Route: 048
     Dates: start: 20131104

REACTIONS (2)
  - Overdose [Unknown]
  - Acute kidney injury [Recovered/Resolved]

NARRATIVE: CASE EVENT DATE: 20180618
